FAERS Safety Report 23884261 (Version 1)
Quarter: 2024Q2

REPORT INFORMATION
  Report Type: Spontaneous
  Country: US (occurrence: None)
  Receive Date: 20240521
  Receipt Date: 20240521
  Transmission Date: 20240716
  Serious: Yes (Disabling)
  Sender: FDA-Public Use
  Company Number: None

PATIENT
  Age: 54 Year
  Sex: Male
  Weight: 119.25 kg

DRUGS (5)
  1. SYMBICORT [Suspect]
     Active Substance: BUDESONIDE\FORMOTEROL FUMARATE DIHYDRATE
     Indication: Asthma
     Dosage: OTHER QUANTITY : 2 PUFF(S);?FREQUENCY : TWICE A DAY;?
     Route: 055
  2. OMEPRAZOLE [Suspect]
     Active Substance: DONEPEZIL HYDROCHLORIDE\OMEPRAZOLE\OMEPRAZOLE MAGNESIUM
  3. FAMOTIDINE [Suspect]
     Active Substance: FAMOTIDINE
  4. MELOXICAM [Concomitant]
     Active Substance: MELOXICAM
  5. One a Day multivitamin for men [Concomitant]

REACTIONS (4)
  - Protein total increased [None]
  - Foot fracture [None]
  - Thoracic vertebral fracture [None]
  - Osteoporosis [None]

NARRATIVE: CASE EVENT DATE: 20231031
